FAERS Safety Report 15374840 (Version 1)
Quarter: 2018Q3

REPORT INFORMATION
  Report Type: Spontaneous
  Country: US (occurrence: US)
  Receive Date: 20180906
  Receipt Date: 20180906
  Transmission Date: 20181010
  Serious: Yes (Hospitalization)
  Sender: FDA-Public Use
  Company Number: None

PATIENT
  Age: 41 Year
  Sex: Male

DRUGS (11)
  1. BIDIL [Concomitant]
     Active Substance: HYDRALAZINE HYDROCHLORIDE\ISOSORBIDE DINITRATE
  2. COSENTYX [Suspect]
     Active Substance: SECUKINUMAB
     Indication: PSORIASIS
     Route: 058
     Dates: start: 20180719
  3. OMEPRAZOLE. [Concomitant]
     Active Substance: OMEPRAZOLE
  4. IBUPROFEN. [Concomitant]
     Active Substance: IBUPROFEN
  5. ATORVASTATIN [Concomitant]
     Active Substance: ATORVASTATIN
  6. FUROSEMIDE. [Concomitant]
     Active Substance: FUROSEMIDE
  7. CARVEDILOL. [Concomitant]
     Active Substance: CARVEDILOL
  8. MOMETASONE [Concomitant]
     Active Substance: MOMETASONE
  9. SPIRONOLACTONE. [Concomitant]
     Active Substance: SPIRONOLACTONE
  10. ENTRESTO [Concomitant]
     Active Substance: SACUBITRIL\VALSARTAN
  11. TORSEMIDE. [Concomitant]
     Active Substance: TORSEMIDE

REACTIONS (1)
  - Surgery [None]

NARRATIVE: CASE EVENT DATE: 20180810
